FAERS Safety Report 9179929 (Version 1)
Quarter: 2013Q1

REPORT INFORMATION
  Report Type: Report from Study
  Country: US (occurrence: US)
  Receive Date: 20130321
  Receipt Date: 20130321
  Transmission Date: 20140127
  Serious: Yes (Hospitalization, Other)
  Sender: FDA-Public Use
  Company Number: US-ABBOTT-13P-163-1064220-00

PATIENT
  Sex: Male

DRUGS (21)
  1. HUMIRA [Suspect]
     Indication: CROHN^S DISEASE
     Dates: end: 201208
  2. HUMIRA [Suspect]
     Dates: start: 20130226
  3. CYMBALTA [Concomitant]
     Indication: DEPRESSION
  4. TRICOR [Concomitant]
     Indication: BLOOD TRIGLYCERIDES
  5. PHENERGAN [Concomitant]
     Indication: NAUSEA
  6. TESTOSTERONE [Concomitant]
     Indication: BLOOD TESTOSTERONE DECREASED
  7. FLOMAX [Concomitant]
     Indication: BENIGN PROSTATIC HYPERPLASIA
  8. SYNTHROID [Concomitant]
     Indication: THYROID DISORDER
  9. ASPIRIN [Concomitant]
     Indication: PRODUCT USED FOR UNKNOWN INDICATION
  10. FLONASE [Concomitant]
     Indication: SINUS DISORDER
     Dosage: SPRAY
  11. CLONAZEPAM [Concomitant]
     Indication: ANXIETY
  12. METHADONE [Concomitant]
     Indication: PAIN
  13. ZOFRAN [Concomitant]
     Indication: NAUSEA
  14. LOMOTIL [Concomitant]
     Indication: DIARRHOEA
  15. PROTONIX [Concomitant]
     Indication: PRODUCT USED FOR UNKNOWN INDICATION
  16. PROPECIA [Concomitant]
     Indication: PRODUCT USED FOR UNKNOWN INDICATION
  17. MULTIVITAMINS [Concomitant]
     Indication: PRODUCT USED FOR UNKNOWN INDICATION
  18. FLEXERIL [Concomitant]
     Indication: ARTHROPATHY
  19. DOVONEX [Concomitant]
     Indication: PSORIASIS
  20. CLOBETASOL CREAM [Concomitant]
     Indication: PSORIASIS
  21. TACLONEX [Concomitant]
     Indication: PRODUCT USED FOR UNKNOWN INDICATION

REACTIONS (3)
  - Renal failure [Recovered/Resolved]
  - Hernia [Recovered/Resolved]
  - Abscess [Recovered/Resolved]
